FAERS Safety Report 4768968-1 (Version None)
Quarter: 2005Q3

REPORT INFORMATION
  Report Type: 
  Country: None (occurrence: None)
  Receive Date: 20050914
  Receipt Date: 20050901
  Transmission Date: 20060218
  Serious: Yes (Other)
  Sender: FDA-Public Use
  Company Number: 2005124391

PATIENT
  Age: 69 Year
  Sex: Male
  Weight: 51 kg

DRUGS (18)
  1. LYRICA [Suspect]
     Indication: NEUROPATHIC PAIN
     Dosage: 150 MG (Y5 MG,  2 IN 1 D), ORAL
     Route: 048
     Dates: start: 20050719, end: 20050820
  2. GLYCERYL (GLYCEROL) [Concomitant]
  3. NITRAZEPAM [Concomitant]
  4. MOVICOL (MACROGOL, POTASSIUM CHLORIDE, SODIUM BICARBONATE, SODIUM CHLO [Concomitant]
  5. PREDNISONE [Concomitant]
  6. MORPHINE [Concomitant]
  7. INDOMETHACIN [Concomitant]
  8. MORPHINE SULFATE [Concomitant]
  9. DOMEPERIDONE (DOMEPERIDONE) [Concomitant]
  10. RABAPRAZOLE (RABEPRAZOLE) [Concomitant]
  11. LACTULOSE [Concomitant]
  12. IPRATROPIUM BROMIDE [Concomitant]
  13. MUPIROCIN (MUPIROCIN) [Concomitant]
  14. NEOMYCIN SULFATE [Concomitant]
  15. CHLORHEXIDINE (CHLORHEXIDINE) [Concomitant]
  16. DIDRNEL PMO (CALCIUM CARBONATE, ETIDRONATE DISODIUM) [Concomitant]
  17. PNEUMOVAX II (PNEUMOCOCCAL VACCINE) [Concomitant]
  18. COMBIVENT [Concomitant]

REACTIONS (1)
  - FAECAL INCONTINENCE [None]
